FAERS Safety Report 5493417-8 (Version None)
Quarter: 2007Q4

REPORT INFORMATION
  Report Type: 
  Country: None (occurrence: None)
  Receive Date: 20071023
  Receipt Date: 20071009
  Transmission Date: 20080405
  Serious: Yes (Hospitalization, Other)
  Sender: FDA-Public Use
  Company Number: US-ELI_LILLY_AND_COMPANY-US200709001564

PATIENT
  Sex: Female

DRUGS (10)
  1. CYMBALTA [Suspect]
     Dosage: UNK, UNKNOWN
  2. HUMATROPE [Suspect]
     Dosage: UNK, UNKNOWN
     Dates: start: 20060101
  3. BYETTA [Concomitant]
     Dosage: UNK, UNKNOWN
  4. COREG [Concomitant]
     Dosage: UNK, UNKNOWN
  5. LASIX [Concomitant]
     Dosage: UNK, UNKNOWN
  6. CARDURA [Concomitant]
     Dosage: UNK, UNKNOWN
  7. SYNTHROID [Concomitant]
     Dosage: UNK, UNKNOWN
  8. LORTAB [Concomitant]
     Dosage: UNK, UNKNOWN
  9. ZETIA [Concomitant]
     Dosage: UNK, UNKNOWN
  10. LACTULOSE [Concomitant]
     Dosage: UNK, UNKNOWN

REACTIONS (4)
  - ARTERIOSCLEROSIS [None]
  - CEREBROVASCULAR ACCIDENT [None]
  - HEPATIC STEATOSIS [None]
  - VISUAL ACUITY REDUCED [None]
